FAERS Safety Report 5542548-2 (Version None)
Quarter: 2007Q4

REPORT INFORMATION
  Report Type: 
  Country: None (occurrence: None)
  Receive Date: 20071120
  Receipt Date: 20070328
  Transmission Date: 20080405
  Serious: Yes (Other)
  Sender: FDA-Public Use
  Company Number: 35567

PATIENT
  Age: 60 Year
  Sex: Female
  Weight: 51.7101 kg

DRUGS (4)
  1. METHOTREXATE [Suspect]
     Indication: RHEUMATOID ARTHRITIS
     Dosage: 0.4ML/X1/WEEKLY
     Dates: start: 20060701
  2. LANTUS [Concomitant]
  3. NOVOLOG [Concomitant]
  4. LISPRO [Concomitant]

REACTIONS (1)
  - MYALGIA [None]
